FAERS Safety Report 16966319 (Version 1)
Quarter: 2019Q4

REPORT INFORMATION
  Report Type: Spontaneous
  Country: US (occurrence: US)
  Receive Date: 20190909
  Receipt Date: 20190909
  Transmission Date: 20200122
  Serious: Yes (Hospitalization)
  Sender: FDA-Public Use
  Company Number: None

PATIENT
  Age: 85 Year
  Sex: Male
  Weight: 72 kg

DRUGS (1)
  1. APIXABAN [Suspect]
     Active Substance: APIXABAN
     Indication: ATRIAL FIBRILLATION
     Dosage: ?          OTHER DOSE:2.5MG;?
     Route: 048
     Dates: start: 20190610

REACTIONS (5)
  - Haemorrhage [None]
  - Large intestine polyp [None]
  - Anaemia [None]
  - Large intestinal haemorrhage [None]
  - Platelet count decreased [None]

NARRATIVE: CASE EVENT DATE: 20190816
